FAERS Safety Report 9858970 (Version 1)
Quarter: 2014Q1

REPORT INFORMATION
  Report Type: Spontaneous
  Country: US (occurrence: US)
  Receive Date: 20140131
  Receipt Date: 20140131
  Transmission Date: 20141002
  Serious: No
  Sender: FDA-Public Use
  Company Number: US-009507513-1401USA014416

PATIENT
  Sex: Male

DRUGS (2)
  1. ZOCOR [Suspect]
     Dosage: UNK
     Dates: start: 1995
  2. STATIN (UNSPECIFIED) [Concomitant]
     Dosage: UNK
     Dates: start: 1995

REACTIONS (2)
  - Drug ineffective [Unknown]
  - Myalgia [Unknown]
